FAERS Safety Report 15813743 (Version 1)
Quarter: 2019Q1

REPORT INFORMATION
  Report Type: Spontaneous
  Country: US (occurrence: US)
  Receive Date: 20190111
  Receipt Date: 20190111
  Transmission Date: 20190417
  Serious: Yes (Disabling)
  Sender: FDA-Public Use
  Company Number: None

PATIENT
  Age: 60 Year
  Sex: Male
  Weight: 81 kg

DRUGS (2)
  1. LEVOFLOXACIN. [Suspect]
     Active Substance: LEVOFLOXACIN
     Indication: INFECTION
     Dosage: ?          QUANTITY:1 TABLET(S);?
     Route: 048
     Dates: start: 20170501, end: 20170606
  2. MULTI VITS [Concomitant]
     Active Substance: VITAMINS

REACTIONS (3)
  - Carpal tunnel syndrome [None]
  - Gait disturbance [None]
  - Tendon injury [None]

NARRATIVE: CASE EVENT DATE: 20170620
